FAERS Safety Report 6159327-8 (Version None)
Quarter: 2009Q2

REPORT INFORMATION
  Report Type: 
  Country: None (occurrence: None)
  Receive Date: 20090414
  Receipt Date: 20090401
  Transmission Date: 20091009
  Serious: Yes (Life-Threatening, Hospitalization)
  Sender: FDA-Public Use
  Company Number: 2009040029

PATIENT
  Age: 68 Year
  Sex: Female
  Weight: 102 kg

DRUGS (11)
  1. TORSEMIDE [Suspect]
     Indication: HYPERTENSION
     Dosage: 10 MG (10 MG, 1 IN 1 D), ORAL
     Route: 048
     Dates: start: 20041101
  2. RAMICARD [Suspect]
     Indication: HYPERTENSION
     Dosage: 10 MG (10 MG, 1 IN 1 D), ORAL
     Route: 048
     Dates: start: 20041101, end: 20080508
  3. SPIRONOLACTONE [Suspect]
     Indication: CARDIAC FAILURE
     Dosage: 25 MG (25 MG, 1 IN 1 D), ORAL
     Route: 048
     Dates: start: 20070101, end: 20080508
  4. XIPAMIDE [Suspect]
     Indication: HYPERTENSION
     Dosage: 40 MG (40 MG, 1 IN 1 D), ORAL
     Route: 048
     Dates: start: 20070101, end: 20080508
  5. ACETYLSALICYLIC ACID (ACETYLSALICYLIC ACID) [Concomitant]
  6. ACTRAPID PENFIL (INSULIN HUMAN) [Concomitant]
  7. BISOBETA (BISOPROLOL FUMARATE) [Concomitant]
  8. DOLORMIN (IBUPROFEN SODIUM) [Concomitant]
  9. PLAVIX [Concomitant]
  10. PRAVASTATIN [Concomitant]
  11. PROTAPHAN PENFILL [Concomitant]

REACTIONS (5)
  - CARDIAC FAILURE [None]
  - DIARRHOEA [None]
  - FLUID INTAKE REDUCED [None]
  - PULSE ABSENT [None]
  - RENAL FAILURE ACUTE [None]
